FAERS Safety Report 4486656-6 (Version None)
Quarter: 2004Q4

REPORT INFORMATION
  Report Type: 
  Country: None (occurrence: None)
  Receive Date: 20041027
  Receipt Date: 20041008
  Transmission Date: 20050328
  Serious: Yes (Other)
  Sender: FDA-Public Use
  Company Number: 200420058GDDC

PATIENT
  Age: 81 Year
  Sex: Male
  Weight: 104 kg

DRUGS (11)
  1. ENOXAPARIN SODIUM [Suspect]
     Indication: MYOCARDIAL INFARCTION
     Dosage: DOSE: ENOXAPARIN BOLUS WAS NOT GIVEN
  2. ASPIRIN [Suspect]
     Indication: MYOCARDIAL INFARCTION
     Route: 048
     Dates: start: 20040407
  3. ALTEPLASE [Suspect]
     Indication: MYOCARDIAL INFARCTION
     Route: 042
     Dates: start: 20040407, end: 20040407
  4. BELOC [Concomitant]
     Indication: ACUTE MYOCARDIAL INFARCTION
     Route: 042
     Dates: start: 20040407, end: 20040407
  5. LOPRESSOR [Concomitant]
     Indication: ACUTE MYOCARDIAL INFARCTION
     Route: 048
     Dates: start: 20040407
  6. CAPTOPRIL [Concomitant]
     Indication: ACUTE MYOCARDIAL INFARCTION
     Route: 048
     Dates: start: 20040407, end: 20040410
  7. SINOPRYL [Concomitant]
     Indication: ACUTE MYOCARDIAL INFARCTION
     Route: 048
     Dates: start: 20040411
  8. ZOCOR [Concomitant]
     Indication: ACUTE MYOCARDIAL INFARCTION
     Route: 048
     Dates: start: 20040407
  9. KALINOR [Concomitant]
     Indication: HYPOKALAEMIA
     Dosage: DOSE: 1 TAB
     Route: 048
     Dates: start: 20040408, end: 20040412
  10. OMEPRAL [Concomitant]
     Indication: PROPHYLAXIS
     Route: 048
     Dates: start: 20040407, end: 20040416
  11. BROMAZEPAM [Concomitant]
     Indication: SEDATION
     Route: 048
     Dates: start: 20040407, end: 20040416

REACTIONS (4)
  - IRON DEFICIENCY ANAEMIA [None]
  - PERICARDIAL EFFUSION [None]
  - PERICARDIAL HAEMORRHAGE [None]
  - VENTRICULAR DYSFUNCTION [None]
